FAERS Safety Report 15410051 (Version 2)
Quarter: 2018Q4

REPORT INFORMATION
  Report Type: Report from Study
  Country: None (occurrence: US)
  Receive Date: 20180921
  Receipt Date: 20181226
  Transmission Date: 20190204
  Serious: Yes (Other)
  Sender: FDA-Public Use
  Company Number: US-ABBVIE-18K-163-2391674-00

PATIENT
  Age: 55 Year
  Sex: Female

DRUGS (4)
  1. PREDNISONE. [Concomitant]
     Active Substance: PREDNISONE
     Indication: PRODUCT USED FOR UNKNOWN INDICATION
  2. EPIPEN [Concomitant]
     Active Substance: EPINEPHRINE
     Indication: PRODUCT USED FOR UNKNOWN INDICATION
  3. LYRICA [Suspect]
     Active Substance: PREGABALIN
     Indication: PRODUCT USED FOR UNKNOWN INDICATION
     Route: 065
  4. HUMIRA [Suspect]
     Active Substance: ADALIMUMAB
     Indication: RHEUMATOID ARTHRITIS
     Route: 058
     Dates: start: 20180608

REACTIONS (45)
  - Animal bite [Recovering/Resolving]
  - Ligament sprain [Unknown]
  - Gait disturbance [Unknown]
  - Nodule [Unknown]
  - Hyperhidrosis [Unknown]
  - Skin discolouration [Unknown]
  - Exostosis [Not Recovered/Not Resolved]
  - Head injury [Unknown]
  - Chills [Unknown]
  - Loss of consciousness [Unknown]
  - Arthralgia [Unknown]
  - Mobility decreased [Unknown]
  - Pruritus [Unknown]
  - Hypersensitivity [Not Recovered/Not Resolved]
  - Limb mass [Not Recovered/Not Resolved]
  - Mobility decreased [Not Recovered/Not Resolved]
  - Dry eye [Unknown]
  - Musculoskeletal stiffness [Not Recovered/Not Resolved]
  - Ankle fracture [Not Recovered/Not Resolved]
  - Muscle contusion [Recovering/Resolving]
  - Sensitivity to weather change [Unknown]
  - Fatigue [Recovering/Resolving]
  - Weight decreased [Not Recovered/Not Resolved]
  - Paranasal sinus hyposecretion [Not Recovered/Not Resolved]
  - Fibula fracture [Unknown]
  - Rheumatoid arthritis [Unknown]
  - Pain in extremity [Recovering/Resolving]
  - Impaired healing [Unknown]
  - Sneezing [Unknown]
  - Bone swelling [Not Recovered/Not Resolved]
  - Loss of personal independence in daily activities [Unknown]
  - Joint swelling [Unknown]
  - Hypoaesthesia [Not Recovered/Not Resolved]
  - Peripheral swelling [Not Recovered/Not Resolved]
  - Pain in extremity [Not Recovered/Not Resolved]
  - Lower limb fracture [Recovering/Resolving]
  - Blue toe syndrome [Unknown]
  - Gait disturbance [Not Recovered/Not Resolved]
  - Peroneal nerve palsy [Not Recovered/Not Resolved]
  - Joint range of motion decreased [Unknown]
  - Headache [Recovering/Resolving]
  - Pyrexia [Unknown]
  - Ear pain [Recovering/Resolving]
  - Oropharyngeal pain [Recovering/Resolving]
  - Back pain [Unknown]

NARRATIVE: CASE EVENT DATE: 2018
